FAERS Safety Report 7895456-6 (Version None)
Quarter: 2011Q4

REPORT INFORMATION
  Report Type: 
  Country: None (occurrence: None)
  Receive Date: 20111104
  Receipt Date: 20111104
  Transmission Date: 20120403
  Serious: No
  Sender: FDA-Public Use
  Company Number: None

PATIENT
  Age: 86 Year
  Sex: Female
  Weight: 56.6996 kg

DRUGS (1)
  1. BONIVA [Suspect]
     Indication: OSTEOPOROSIS
     Dosage: 150 MG ONCE 30 DAYS
     Dates: start: 20110718

REACTIONS (3)
  - ARTHRALGIA [None]
  - MIDDLE INSOMNIA [None]
  - PAIN IN EXTREMITY [None]
